FAERS Safety Report 9357019 (Version 1)
Quarter: 2013Q2

REPORT INFORMATION
  Report Type: Spontaneous
  Country: FR (occurrence: FR)
  Receive Date: 20130620
  Receipt Date: 20130620
  Transmission Date: 20140414
  Serious: Yes (Other)
  Sender: FDA-Public Use
  Company Number: FR-RANBAXY-2013R1-70293

PATIENT
  Age: 15 Year
  Sex: Female

DRUGS (1)
  1. ISOTRETINOIN [Suspect]
     Indication: ACNE
     Dosage: 40 MG/DAY
     Route: 048
     Dates: start: 199809, end: 200205

REACTIONS (1)
  - Hypersomnia [Recovered/Resolved]
